FAERS Safety Report 8475051-0 (Version None)
Quarter: 2012Q2

REPORT INFORMATION
  Report Type: 
  Country: None (occurrence: None)
  Receive Date: 20120628
  Receipt Date: 20120618
  Transmission Date: 20120825
  Serious: Yes (Death)
  Sender: FDA-Public Use
  Company Number: US-PFIZER INC-2012148605

PATIENT
  Age: 48 Year
  Sex: Female

DRUGS (2)
  1. KEPPRA [Suspect]
     Dosage: UNK
  2. METHADONE HYDROCHLORIDE [Suspect]

REACTIONS (3)
  - ACCIDENTAL DEATH [None]
  - TOXICITY TO VARIOUS AGENTS [None]
  - ACCIDENT [None]
